FAERS Safety Report 8695910 (Version 2)
Quarter: 2013Q4

REPORT INFORMATION
  Report Type: Spontaneous
  Country: US (occurrence: US)
  Receive Date: 20120801
  Receipt Date: 20131031
  Transmission Date: 20140711
  Serious: Yes (Hospitalization, Other)
  Sender: FDA-Public Use
  Company Number: US-009507513-1207USA011419

PATIENT
  Age: 52 Year
  Sex: 0

DRUGS (1)
  1. ZOCOR [Suspect]
     Route: 048

REACTIONS (12)
  - Renal failure [Unknown]
  - Compartment syndrome [Unknown]
  - Erythema [Unknown]
  - Sepsis [Unknown]
  - Pain [Unknown]
  - Musculoskeletal disorder [Unknown]
  - Hyperkalaemia [Unknown]
  - Mental status changes [Unknown]
  - Toxicity to various agents [Unknown]
  - Oedema [Unknown]
  - Procedural pain [Unknown]
  - Liver function test abnormal [Unknown]
